FAERS Safety Report 7500965-5 (Version None)
Quarter: 2011Q2

REPORT INFORMATION
  Report Type: 
  Country: None (occurrence: None)
  Receive Date: 20110524
  Receipt Date: 20110516
  Transmission Date: 20111010
  Serious: Yes (Hospitalization)
  Sender: FDA-Public Use
  Company Number: US-PFIZER INC-2011084657

PATIENT
  Age: 65 Year
  Sex: Male

DRUGS (5)
  1. ADVAIR DISKUS 100/50 [Concomitant]
  2. PROTONIX [Concomitant]
  3. ZOSYN [Concomitant]
     Indication: PNEUMONIA
     Dosage: UNK
     Route: 042
     Dates: start: 20110321, end: 20110324
  4. PIRFENIDONE [Suspect]
     Dosage: 2403 MG/DAY
     Dates: start: 20081009
  5. AVELOX [Concomitant]
     Indication: PNEUMONIA
     Dosage: UNK
     Route: 048
     Dates: start: 20110321, end: 20110324

REACTIONS (1)
  - IDIOPATHIC PULMONARY FIBROSIS [None]
